FAERS Safety Report 6633636-8 (Version None)
Quarter: 2010Q1

REPORT INFORMATION
  Report Type: 
  Country: None (occurrence: None)
  Receive Date: 20100312
  Receipt Date: 20100304
  Transmission Date: 20100710
  Serious: Yes (Life-Threatening)
  Sender: FDA-Public Use
  Company Number: TR-GENENTECH-299021

PATIENT
  Sex: Female
  Weight: 67 kg

DRUGS (1)
  1. MABTHERA [Suspect]
     Indication: DRUG USE FOR UNKNOWN INDICATION
     Dosage: 635 MG, UNK
     Route: 042

REACTIONS (3)
  - DRY THROAT [None]
  - OROPHARYNGEAL PAIN [None]
  - TREMOR [None]
